FAERS Safety Report 7089496-7 (Version None)
Quarter: 2010Q4

REPORT INFORMATION
  Report Type: 
  Country: None (occurrence: None)
  Receive Date: 20101108
  Receipt Date: 20101027
  Transmission Date: 20110411
  Serious: Yes (Hospitalization)
  Sender: FDA-Public Use
  Company Number: CN-BAYER-201044070GPV

PATIENT
  Age: 69 Year
  Sex: Female
  Weight: 65 kg

DRUGS (1)
  1. MAGNEVIST [Suspect]
     Indication: NUCLEAR MAGNETIC RESONANCE IMAGING
     Dosage: TOTAL DAILY DOSE: 15 ML
     Route: 040
     Dates: start: 20101020, end: 20101020

REACTIONS (3)
  - BLISTER [None]
  - INJECTION SITE PAIN [None]
  - SKIN DISCOLOURATION [None]
